FAERS Safety Report 8837985 (Version 2)
Quarter: 2015Q2

REPORT INFORMATION
  Report Type: Report from Study
  Country: US (occurrence: US)
  Receive Date: 20121012
  Receipt Date: 20150429
  Transmission Date: 20150821
  Serious: Yes (Hospitalization)
  Sender: FDA-Public Use
  Company Number: US-ROCHE-1129027

PATIENT
  Sex: Male
  Weight: 59.3 kg

DRUGS (5)
  1. NUTROPIN AQ [Suspect]
     Active Substance: SOMATROPIN
     Route: 058
  2. NUTROPIN AQ [Suspect]
     Active Substance: SOMATROPIN
     Indication: DWARFISM
     Dosage: FORM STRENGTH 10 MG
     Route: 058
     Dates: start: 20061119
  3. L-THYROXINE [Concomitant]
     Active Substance: LEVOTHYROXINE
     Route: 048
  4. NUTROPIN AQ [Suspect]
     Active Substance: SOMATROPIN
     Route: 058
  5. NUTROPIN AQ [Suspect]
     Active Substance: SOMATROPIN
     Route: 058

REACTIONS (6)
  - Infection [Unknown]
  - Malaise [Unknown]
  - Paraesthesia [Unknown]
  - Initial insomnia [Unknown]
  - Rash [Unknown]
  - Excoriation [Unknown]
